FAERS Safety Report 8316222-3 (Version None)
Quarter: 2012Q2

REPORT INFORMATION
  Report Type: 
  Country: None (occurrence: None)
  Receive Date: 20120427
  Receipt Date: 20120424
  Transmission Date: 20120825
  Serious: No
  Sender: FDA-Public Use
  Company Number: US-PFIZER INC-2012101557

PATIENT
  Sex: Female
  Weight: 49.433 kg

DRUGS (4)
  1. TYLENOL (CAPLET) [Concomitant]
     Dosage: UNK
  2. LYRICA [Suspect]
     Indication: FIBROMYALGIA
     Dosage: 150 MG, 3X/DAY
     Route: 048
     Dates: start: 20080101, end: 20110101
  3. LYRICA [Suspect]
     Dosage: 150 MG, 3X/DAY
     Route: 048
     Dates: start: 20110101
  4. CYMBALTA [Concomitant]
     Dosage: UNK

REACTIONS (3)
  - DEPRESSION [None]
  - TREMOR [None]
  - NASOPHARYNGITIS [None]
